FAERS Safety Report 9397397 (Version 1)
Quarter: 2013Q3

REPORT INFORMATION
  Report Type: Spontaneous
  Country: US (occurrence: US)
  Receive Date: 20130712
  Receipt Date: 20130712
  Transmission Date: 20140515
  Serious: Yes (Other)
  Sender: FDA-Public Use
  Company Number: US-JNJCP-30000169504

PATIENT
  Sex: Male
  Weight: 22 kg

DRUGS (9)
  1. AVEENO BABY NATURAL PROTECTION MINERAL BLOCK SUNBLOCK STICK SPF 50 [Suspect]
     Indication: PROPHYLAXIS
     Dosage: LIBERALLY, TWICE PER DAY
     Route: 061
     Dates: start: 20130625, end: 20130625
  2. NO DRUG NAME [Concomitant]
  3. NO DRUG NAME [Concomitant]
  4. NO DRUG NAME [Concomitant]
  5. NO DRUG NAME [Concomitant]
  6. JUICE [Concomitant]
     Route: 048
  7. NO DRUG NAME [Concomitant]
  8. NO DRUG NAME [Concomitant]
  9. NO DRUG NAME [Concomitant]

REACTIONS (5)
  - Bruxism [Not Recovered/Not Resolved]
  - Aggression [Not Recovered/Not Resolved]
  - Product lot number issue [Unknown]
  - Irritability [Not Recovered/Not Resolved]
  - Hypersensitivity [Not Recovered/Not Resolved]
